FAERS Safety Report 7714696-X (Version None)
Quarter: 2011Q3

REPORT INFORMATION
  Report Type: 
  Country: None (occurrence: None)
  Receive Date: 20110822
  Receipt Date: 20110815
  Transmission Date: 20111222
  Serious: Yes (Other)
  Sender: FDA-Public Use
  Company Number: 1000022876

PATIENT
  Age: 68 Year
  Sex: Female

DRUGS (1)
  1. DALIRESP [Suspect]

REACTIONS (1)
  - NEUTROPENIA [None]
